FAERS Safety Report 5368614-2 (Version None)
Quarter: 2007Q2

REPORT INFORMATION
  Report Type: 
  Country: None (occurrence: None)
  Receive Date: 20070620
  Receipt Date: 20070608
  Transmission Date: 20071010
  Serious: Yes (Other)
  Sender: FDA-Public Use
  Company Number: GXKR2007BR05038

PATIENT
  Age: 27 Year
  Sex: Female

DRUGS (3)
  1. AMOXICILLIN TRIHYDRATE [Suspect]
     Indication: POSTOPERATIVE CARE
     Dosage: 500 MG, BID, ORAL
     Route: 048
     Dates: start: 20070607, end: 20070608
  2. IBUPROFEN [Concomitant]
  3. PIROXICAM [Concomitant]

REACTIONS (4)
  - DIZZINESS [None]
  - HEADACHE [None]
  - MALAISE [None]
  - SYNCOPE [None]
